FAERS Safety Report 13584707 (Version 1)
Quarter: 2017Q2

REPORT INFORMATION
  Report Type: Spontaneous
  Country: US (occurrence: US)
  Receive Date: 20170525
  Receipt Date: 20170525
  Transmission Date: 20170830
  Serious: No
  Sender: FDA-Public Use
  Company Number: None

PATIENT
  Age: 81 Year
  Sex: Female

DRUGS (1)
  1. MYLERAN [Suspect]
     Active Substance: BUSULFAN
     Indication: LEUKAEMIA
     Route: 048
     Dates: start: 20170331, end: 20170524

REACTIONS (1)
  - Fatigue [None]

NARRATIVE: CASE EVENT DATE: 20170331
